FAERS Safety Report 21796426 (Version 1)
Quarter: 2022Q4

REPORT INFORMATION
  Report Type: Report from Study
  Country: US (occurrence: US)
  Receive Date: 20221229
  Receipt Date: 20221229
  Transmission Date: 20230113
  Serious: No
  Sender: FDA-Public Use
  Company Number: US-ABBVIE-22K-163-4480519-00

PATIENT
  Sex: Female

DRUGS (2)
  1. HUMIRA [Suspect]
     Active Substance: ADALIMUMAB
     Indication: Colitis ulcerative
     Dosage: CF
     Route: 058
  2. HUMIRA [Suspect]
     Active Substance: ADALIMUMAB
     Indication: Product used for unknown indication
     Route: 058

REACTIONS (5)
  - Fall [Unknown]
  - Ankle fracture [Recovered/Resolved]
  - Ankle fracture [Recovering/Resolving]
  - Foot fracture [Recovering/Resolving]
  - Upper limb fracture [Recovering/Resolving]
